FAERS Safety Report 13340820 (Version 3)
Quarter: 2017Q2

REPORT INFORMATION
  Report Type: Report from Study
  Country: US (occurrence: US)
  Receive Date: 20170316
  Receipt Date: 20170503
  Transmission Date: 20170830
  Serious: Yes (Hospitalization, Other)
  Sender: FDA-Public Use
  Company Number: US-BIOGEN-2017BI00371168

PATIENT
  Age: 61 Year
  Sex: Female

DRUGS (1)
  1. TYSABRI [Suspect]
     Active Substance: NATALIZUMAB
     Indication: MULTIPLE SCLEROSIS
     Route: 065
     Dates: start: 20150915, end: 20161206

REACTIONS (6)
  - Jugular vein thrombosis [Recovered/Resolved]
  - Multiple sclerosis relapse [Recovered/Resolved]
  - Sepsis [Recovered/Resolved]
  - Infusion site extravasation [Recovered/Resolved]
  - Poor venous access [Recovered/Resolved]
  - Salmonellosis [Unknown]

NARRATIVE: CASE EVENT DATE: 201612
